FAERS Safety Report 15483272 (Version 6)
Quarter: 2019Q1

REPORT INFORMATION
  Report Type: Report from Study
  Country: DE (occurrence: DE)
  Receive Date: 20181010
  Receipt Date: 20190305
  Transmission Date: 20190417
  Serious: Yes (Life-Threatening, Hospitalization)
  Sender: FDA-Public Use
  Company Number: DE-ROCHE-2195749

PATIENT
  Age: 65 Year
  Sex: Female
  Weight: 57 kg

DRUGS (30)
  1. BEVACIZUMAB. [Suspect]
     Active Substance: BEVACIZUMAB
     Indication: OVARIAN CANCER
     Dosage: DATE OF MOST RECENT DOSE (990 MG) OF BEVACIZUMAB PRIOR TO EVENT ONSET: 16/MAY/2018?MOST RECENT DOSE
     Route: 042
     Dates: start: 20180424
  2. NOVALGIN (METAMIZOLE SODIUM) [Concomitant]
     Active Substance: METAMIZOLE SODIUM
     Indication: PROPHYLAXIS
     Route: 065
     Dates: start: 20180320
  3. GRANISETRON [Concomitant]
     Active Substance: GRANISETRON
     Route: 065
     Dates: start: 20181017, end: 20181017
  4. RANITIDIN [Concomitant]
     Active Substance: RANITIDINE HYDROCHLORIDE
     Indication: INFUSION RELATED REACTION
     Route: 065
     Dates: start: 20180918, end: 20180918
  5. CLEXANE [Concomitant]
     Active Substance: ENOXAPARIN SODIUM
     Indication: PROPHYLAXIS
     Route: 065
     Dates: start: 20181029
  6. CARBOPLATIN. [Suspect]
     Active Substance: CARBOPLATIN
     Indication: OVARIAN CANCER
     Dosage: DATE OF MOST RECENT DOSE (491.52 MG) OF CARBOPLATIN PRIOR TO EVENT ONSET: 18/SEP/2018?MOST RECENT DO
     Route: 042
     Dates: start: 20180424
  7. TAVEGIL [Concomitant]
     Active Substance: CLEMASTINE FUMARATE
     Indication: PROPHYLAXIS
     Route: 065
     Dates: start: 20180918, end: 20180918
  8. DEXAMETASON [Concomitant]
     Active Substance: DEXAMETHASONE
     Indication: PROPHYLAXIS
     Route: 042
     Dates: start: 20180918, end: 20180918
  9. SOLU DECORTIN H [Concomitant]
     Active Substance: PREDNISOLONE SODIUM SUCCINATE
     Indication: INFUSION RELATED REACTION
     Route: 042
     Dates: start: 20180918, end: 20180918
  10. GRANISETRON [Concomitant]
     Active Substance: GRANISETRON
     Indication: PROPHYLAXIS
     Route: 065
     Dates: start: 20180918, end: 20180918
  11. GRANISETRON [Concomitant]
     Active Substance: GRANISETRON
     Route: 065
     Dates: start: 20180828, end: 20180828
  12. RANITIC [Concomitant]
     Active Substance: RANITIDINE HYDROCHLORIDE
     Route: 065
     Dates: start: 20180828, end: 20180828
  13. RANITIC [Concomitant]
     Active Substance: RANITIDINE HYDROCHLORIDE
     Indication: PROPHYLAXIS
     Route: 065
     Dates: start: 20180918, end: 20180918
  14. DEXAMETASON [Concomitant]
     Active Substance: DEXAMETHASONE
     Route: 042
     Dates: start: 20180828, end: 20180828
  15. MUCOFALK [Concomitant]
     Active Substance: HERBALS\PLANTAGO OVATA LEAF
     Indication: PROPHYLAXIS
     Route: 065
     Dates: start: 20180320
  16. RANITIDIN [Concomitant]
     Active Substance: RANITIDINE HYDROCHLORIDE
     Route: 065
     Dates: start: 20181017, end: 20181017
  17. CEFUROXIM [Concomitant]
     Active Substance: CEFUROXIME
     Indication: DIARRHOEA
     Route: 065
     Dates: start: 20181029
  18. ZOFRAN [Concomitant]
     Active Substance: ONDANSETRON HYDROCHLORIDE
     Indication: NAUSEA
  19. PACLITAXEL. [Suspect]
     Active Substance: PACLITAXEL
     Indication: OVARIAN CANCER
     Dosage: DATE OF MOST RECENT DOSE (295.75 MG) OF PACLITAXEL PRIOR TO EVENT ONSET: 18/SEP/2018?MOST RECENT DOS
     Route: 042
     Dates: start: 20180424
  20. PANTOPRAZOL [Concomitant]
     Active Substance: PANTOPRAZOLE SODIUM
     Indication: PROPHYLAXIS
     Route: 065
     Dates: start: 20180320
  21. ATEZOLIZUMAB. [Suspect]
     Active Substance: ATEZOLIZUMAB
     Indication: OVARIAN CANCER
     Dosage: DATE OF MOST RECENT DOSE (1200 MG) OF BLINDED ATEZOLIZUMAB: 18/SEP/2018?MOST RECENT DOSE ON 17/OCT/2
     Route: 042
     Dates: start: 20180424
  22. TILIDIN [Concomitant]
     Active Substance: NALOXONE HYDROCHLORIDE\TILIDINE HYDROCHLORIDE
     Indication: PROPHYLAXIS
     Route: 065
     Dates: start: 20180606
  23. LOPERAMID [Concomitant]
     Active Substance: LOPERAMIDE
     Indication: DIARRHOEA
     Route: 065
     Dates: start: 20181029
  24. JONOSTERIL [Concomitant]
     Indication: DIARRHOEA
     Route: 065
     Dates: start: 20181029
  25. LAXOBERAL [Concomitant]
     Active Substance: SODIUM PICOSULFATE
     Indication: CONSTIPATION PROPHYLAXIS
     Route: 065
     Dates: start: 20180917
  26. FUROSEMID [Concomitant]
     Active Substance: FUROSEMIDE
     Indication: OEDEMA
     Route: 065
     Dates: start: 20180320
  27. TAVEGIL [Concomitant]
     Active Substance: CLEMASTINE FUMARATE
     Indication: INFUSION RELATED REACTION
     Route: 065
     Dates: start: 20180828, end: 20180828
  28. TAVEGIL [Concomitant]
     Active Substance: CLEMASTINE FUMARATE
     Route: 065
     Dates: start: 20181017, end: 20181017
  29. DEXAMETASON [Concomitant]
     Active Substance: DEXAMETHASONE
     Route: 042
     Dates: start: 20181017, end: 20181017
  30. CLONT (GERMANY) [Concomitant]
     Indication: DIARRHOEA
     Route: 065
     Dates: start: 20181029

REACTIONS (3)
  - Wound dehiscence [Recovered/Resolved]
  - Platelet count decreased [Recovered/Resolved]
  - Platelet count decreased [Recovered/Resolved]

NARRATIVE: CASE EVENT DATE: 20180724
